FAERS Safety Report 11451099 (Version 2)
Quarter: 2015Q4

REPORT INFORMATION
  Report Type: Spontaneous
  Country: US (occurrence: US)
  Receive Date: 20150903
  Receipt Date: 20151020
  Transmission Date: 20160304
  Serious: No
  Sender: FDA-Public Use
  Company Number: US-ROCHE-ITM201506IM017561

PATIENT
  Sex: Female
  Weight: 104.42 kg

DRUGS (1)
  1. ESBRIET [Suspect]
     Active Substance: PIRFENIDONE
     Indication: IDIOPATHIC PULMONARY FIBROSIS
     Dosage: 2403 MG DAILY, 3 CAPSULES THRICE A DAY
     Route: 048
     Dates: start: 20150605

REACTIONS (5)
  - Depression [Unknown]
  - Visual impairment [Unknown]
  - Gastric disorder [Unknown]
  - Adverse reaction [Unknown]
  - Nausea [Unknown]
